FAERS Safety Report 9731516 (Version 1)
Quarter: 2013Q4

REPORT INFORMATION
  Report Type: Spontaneous
  Country: US (occurrence: None)
  Receive Date: 20131204
  Receipt Date: 20131204
  Transmission Date: 20140711
  Serious: No
  Sender: FDA-Public Use
  Company Number: None

PATIENT
  Age: 42 Year
  Sex: Male

DRUGS (1)
  1. METHYLPHENIDATE ER [Suspect]
     Indication: ATTENTION DEFICIT/HYPERACTIVITY DISORDER
     Dosage: 1 PILL
     Route: 048
     Dates: start: 20131128, end: 20131203

REACTIONS (5)
  - Agitation [None]
  - Product substitution issue [None]
  - Disturbance in attention [None]
  - Attention deficit/hyperactivity disorder [None]
  - Condition aggravated [None]
